FAERS Safety Report 11326343 (Version 1)
Quarter: 2015Q3

REPORT INFORMATION
  Report Type: Spontaneous
  Country: US (occurrence: None)
  Receive Date: 20150629
  Receipt Date: 20150629
  Transmission Date: 20151125
  Serious: No
  Sender: FDA-Public Use
  Company Number: A-NJ2014-110230

PATIENT
  Age: 54 Year
  Sex: Female

DRUGS (3)
  1. CLEOCIN (CLINDAMYCIN HYDROCHLORIDE) [Concomitant]
  2. OPSUMIT [Suspect]
     Active Substance: MACITENTAN
     Indication: PULMONARY ARTERIAL HYPERTENSION
     Route: 048
     Dates: start: 20140925
  3. TYLENOL WITH CODEINE NO. 3 (CODEINE PHOSPHATE, PARACETAMOL) [Concomitant]

REACTIONS (2)
  - Peripheral swelling [None]
  - Cellulitis [None]

NARRATIVE: CASE EVENT DATE: 20141219
